FAERS Safety Report 8524737-8 (Version None)
Quarter: 2012Q3

REPORT INFORMATION
  Report Type: 
  Country: None (occurrence: None)
  Receive Date: 20120720
  Receipt Date: 20120709
  Transmission Date: 20120928
  Serious: Yes (Hospitalization)
  Sender: FDA-Public Use
  Company Number: BE-MSD-2012SP030448

PATIENT

DRUGS (3)
  1. PEGINTERFERON ALFA-2B [Suspect]
     Indication: HEPATITIS C
     Dosage: 100 A?G, QW
     Dates: start: 20120416, end: 20120625
  2. PEGINTERFERON ALFA-2B [Suspect]
     Dosage: 100 MICROGRAM, UNK
     Dates: start: 20120709
  3. REBETOL [Suspect]
     Dosage: 1000 MG, QD
     Dates: start: 20120416

REACTIONS (6)
  - WEIGHT DECREASED [None]
  - HEADACHE [None]
  - MYALGIA [None]
  - SUPPORTIVE CARE [None]
  - FEELING ABNORMAL [None]
  - DECREASED APPETITE [None]
